FAERS Safety Report 4436201-6 (Version None)
Quarter: 2004Q3

REPORT INFORMATION
  Report Type: 
  Country: None (occurrence: None)
  Receive Date: 20040830
  Receipt Date: 20040517
  Transmission Date: 20050211
  Serious: Yes (Other)
  Sender: FDA-Public Use
  Company Number: US-BRISTOL-MYERS SQUIBB COMPANY-12589263

PATIENT
  Age: 61 Year
  Sex: Male

DRUGS (6)
  1. ERBITUX [Suspect]
     Indication: COLORECTAL CANCER METASTATIC
     Route: 042
     Dates: start: 20040517, end: 20040517
  2. ALBUTEROL [Concomitant]
     Dates: start: 20040517, end: 20040517
  3. BENADRYL [Concomitant]
     Dates: start: 20040517, end: 20040517
  4. DECADRON [Concomitant]
     Dates: start: 20040517, end: 20040517
  5. EPINEPHRINE [Concomitant]
     Dates: start: 20040517, end: 20040517
  6. PEPCID [Concomitant]
     Dates: start: 20040517, end: 20040517

REACTIONS (1)
  - ANAPHYLACTIC REACTION [None]
